FAERS Safety Report 7568447-2 (Version None)
Quarter: 2011Q2

REPORT INFORMATION
  Report Type: 
  Country: None (occurrence: None)
  Receive Date: 20110623
  Receipt Date: 20110614
  Transmission Date: 20111010
  Serious: Yes (Other)
  Sender: FDA-Public Use
  Company Number: US-SANOFI-AVENTIS-2011SA039132

PATIENT
  Age: 75 Year
  Sex: Male

DRUGS (1)
  1. LANTUS [Suspect]
     Indication: TYPE 2 DIABETES MELLITUS
     Dosage: DOSE:10 UNIT(S)
     Route: 058
     Dates: start: 20110401

REACTIONS (3)
  - HYPOGLYCAEMIA [None]
  - PNEUMONIA [None]
  - DEHYDRATION [None]
